FAERS Safety Report 8594952-6 (Version None)
Quarter: 2012Q3

REPORT INFORMATION
  Report Type: 
  Country: None (occurrence: None)
  Receive Date: 20120815
  Receipt Date: 20120810
  Transmission Date: 20120928
  Serious: Yes (Death, Hospitalization)
  Sender: FDA-Public Use
  Company Number: PHHY2012BR070067

PATIENT
  Sex: Female

DRUGS (2)
  1. METOPROLOL SUCCINATE [Concomitant]
     Indication: HYPERTENSION
     Dosage: 2 TABLETS DAILY
     Route: 048
     Dates: start: 20120701
  2. DIOVAN [Suspect]
     Indication: HYPERTENSION
     Dosage: 1 TABLET DAILY
     Route: 048
     Dates: start: 20120701

REACTIONS (7)
  - EYE MOVEMENT DISORDER [None]
  - CARDIAC FAILURE [None]
  - RESPIRATORY FAILURE [None]
  - ASTHENIA [None]
  - DEHYDRATION [None]
  - RESPIRATORY TRACT INFECTION [None]
  - SOMNOLENCE [None]
